FAERS Safety Report 4470343-4 (Version None)
Quarter: 2004Q3

REPORT INFORMATION
  Report Type: 
  Country: None (occurrence: None)
  Receive Date: 20040910
  Receipt Date: 20040611
  Transmission Date: 20050211
  Serious: No
  Sender: FDA-Public Use
  Company Number: 2004-00073

PATIENT
  Age: 57 Year
  Sex: Female
  Weight: 79.4 kg

DRUGS (3)
  1. VELCADE [Suspect]
     Indication: NON-HODGKIN'S LYMPHOMA
     Dosage: 1.00 MG/M2, IV BOLUS
     Route: 040
     Dates: start: 20040206, end: 20040209
  2. ANZEMET (DOLASETRON MESILATE) [Concomitant]
  3. DECADRON [Concomitant]

REACTIONS (1)
  - THROMBOCYTOPENIA [None]
